FAERS Safety Report 8859434 (Version 2)
Quarter: 2013Q1

REPORT INFORMATION
  Report Type: Spontaneous
  Country: US (occurrence: None)
  Receive Date: 20121022
  Receipt Date: 20121109
  Transmission Date: 20140127
  Serious: Yes (Other)
  Sender: FDA-Public Use
  Company Number: 2012MA012185

PATIENT
  Age: 63 Year
  Sex: Female
  Weight: 175.8 kg

DRUGS (1)
  1. OXYCODONE HCL [Suspect]
     Route: 048
     Dates: start: 20121006

REACTIONS (6)
  - Chest discomfort [None]
  - Dyspnoea [None]
  - Nausea [None]
  - Dizziness [None]
  - Chest pain [None]
  - Muscle spasms [None]
